FAERS Safety Report 7491116-4 (Version None)
Quarter: 2011Q2

REPORT INFORMATION
  Report Type: 
  Country: None (occurrence: None)
  Receive Date: 20110519
  Receipt Date: 20110510
  Transmission Date: 20111010
  Serious: Yes (Hospitalization)
  Sender: FDA-Public Use
  Company Number: FI-ROCHE-776815

PATIENT
  Age: 60 Year
  Sex: Male

DRUGS (1)
  1. XELODA [Suspect]
     Dosage: START DATE: 2011
     Route: 065
     Dates: end: 20110501

REACTIONS (2)
  - DIARRHOEA [None]
  - ORAL DISORDER [None]
